FAERS Safety Report 14425669 (Version 2)
Quarter: 2018Q1

REPORT INFORMATION
  Report Type: Spontaneous
  Country: JP (occurrence: JP)
  Receive Date: 20180123
  Receipt Date: 20180125
  Transmission Date: 20180509
  Serious: No
  Sender: FDA-Public Use
  Company Number: JP-BRISTOL-MYERS SQUIBB COMPANY-BMS-2018-003946

PATIENT
  Age: 34 Year
  Sex: Female

DRUGS (2)
  1. KENACORT-A [Suspect]
     Active Substance: TRIAMCINOLONE
     Indication: TENOSYNOVITIS STENOSANS
     Dosage: 1 DF, UNK
     Route: 050
  2. XYLOCAINE [Suspect]
     Active Substance: LIDOCAINE HYDROCHLORIDE
     Indication: TENOSYNOVITIS STENOSANS
     Route: 050

REACTIONS (1)
  - Injection site atrophy [Unknown]
